FAERS Safety Report 6809577-X (Version None)
Quarter: 2010Q2

REPORT INFORMATION
  Report Type: 
  Country: None (occurrence: None)
  Receive Date: 20100630
  Receipt Date: 20100629
  Transmission Date: 20101027
  Serious: Yes (Death)
  Sender: FDA-Public Use
  Company Number: PHHY2010BR42153

PATIENT
  Sex: Male

DRUGS (2)
  1. DIOVAN [Suspect]
     Dosage: 320 MG, UNK
  2. DIOVAN [Suspect]
     Dosage: 160/10 MG

REACTIONS (1)
  - DEATH [None]
